FAERS Safety Report 12679316 (Version 1)
Quarter: 2016Q3

REPORT INFORMATION
  Report Type: Spontaneous
  Country: US (occurrence: US)
  Receive Date: 20160824
  Receipt Date: 20160824
  Transmission Date: 20161109
  Serious: No
  Sender: FDA-Public Use
  Company Number: US-SUN PHARMACEUTICAL INDUSTRIES LTD-2015US-101236

PATIENT
  Sex: Female

DRUGS (5)
  1. ENABLEX [Suspect]
     Active Substance: DARIFENACIN HYDROBROMIDE
     Indication: CYSTITIS
     Route: 065
  2. PYRIDIUM [Suspect]
     Active Substance: PHENAZOPYRIDINE
     Indication: CYSTITIS
     Route: 065
  3. BACTRIM [Suspect]
     Active Substance: SULFAMETHOXAZOLE\TRIMETHOPRIM
     Indication: CYSTITIS
     Route: 065
  4. CIPRO [Concomitant]
     Active Substance: CIPROFLOXACIN HYDROCHLORIDE
     Indication: CYSTITIS
     Route: 065
  5. OXYBUTIN [Suspect]
     Active Substance: OXYBUTYNIN
     Indication: CYSTITIS
     Route: 065

REACTIONS (2)
  - Drug ineffective [Unknown]
  - Vomiting [Unknown]
